FAERS Safety Report 7600496-8 (Version None)
Quarter: 2011Q2

REPORT INFORMATION
  Report Type: 
  Country: None (occurrence: None)
  Receive Date: 20110629
  Receipt Date: 20110616
  Transmission Date: 20111010
  Serious: Yes (Other)
  Sender: FDA-Public Use
  Company Number: SE-1185880

PATIENT
  Age: 81 Year
  Sex: Female

DRUGS (3)
  1. DEXAMETHASONE SODIUM PHOSPHATE [Concomitant]
  2. TAFLOTAN [Concomitant]
  3. NEVENAC 0.1% OPHTHALMIC SUSPENSION (NEVANAC) [Suspect]
     Indication: EYE INFLAMMATION
     Dosage: TID OPHTHALMIC
     Route: 047
     Dates: end: 20110502

REACTIONS (10)
  - ANXIETY [None]
  - WEIGHT DECREASED [None]
  - HEADACHE [None]
  - TACHYCARDIA [None]
  - DEPRESSION [None]
  - NAUSEA [None]
  - DIARRHOEA [None]
  - INFLAMMATION [None]
  - HYPOTENSION [None]
  - HAEMATOCHEZIA [None]
